FAERS Safety Report 23666173 (Version 1)
Quarter: 2024Q1

REPORT INFORMATION
  Report Type: Spontaneous
  Country: ES (occurrence: ES)
  Receive Date: 20240324
  Receipt Date: 20240324
  Transmission Date: 20240409
  Serious: Yes (Hospitalization, Other)
  Sender: FDA-Public Use
  Company Number: ES-STRIDES ARCOLAB LIMITED-2024SP003241

PATIENT
  Age: 60 Year
  Sex: Male

DRUGS (6)
  1. PREDNISOLONE [Suspect]
     Active Substance: PREDNISOLONE
     Dosage: UNK
     Route: 065
  2. MYCOPHENOLATE MOFETIL [Suspect]
     Active Substance: MYCOPHENOLATE MOFETIL
     Indication: IgA nephropathy
     Dosage: UNK
     Route: 065
  3. IRBESARTAN [Suspect]
     Active Substance: IRBESARTAN
     Indication: IgA nephropathy
     Dosage: UNK
     Route: 065
  4. ZEMPLAR [Suspect]
     Active Substance: PARICALCITOL
     Indication: IgA nephropathy
     Dosage: 1 MICROGRAM PER DAY
     Route: 048
  5. SECUKINUMAB [Suspect]
     Active Substance: SECUKINUMAB
     Indication: IgA nephropathy
     Dosage: 300 MILLIGRAM (IN 0, 1, 2, 3 AND 4?WEEKS IN INDUCTION PHASE)
     Route: 058
  6. SECUKINUMAB [Suspect]
     Active Substance: SECUKINUMAB
     Dosage: UNK, MONTHLY
     Route: 058

REACTIONS (4)
  - Drug ineffective [Unknown]
  - COVID-19 [Unknown]
  - Urinary tract candidiasis [Recovered/Resolved]
  - Off label use [Unknown]
